FAERS Safety Report 12263630 (Version 5)
Quarter: 2016Q2

REPORT INFORMATION
  Report Type: Report from Study
  Country: IL (occurrence: IL)
  Receive Date: 20160413
  Receipt Date: 20160620
  Transmission Date: 20160815
  Serious: Yes (Hospitalization)
  Sender: FDA-Public Use
  Company Number: PHHY2016IL048786

PATIENT
  Age: 47 Year
  Sex: Male

DRUGS (1)
  1. GILENYA [Suspect]
     Active Substance: FINGOLIMOD HYDROCHLORIDE
     Indication: MULTIPLE SCLEROSIS
     Dosage: 0.5 MG, QD
     Route: 048
     Dates: start: 20121122

REACTIONS (8)
  - Pyrexia [Recovered/Resolved]
  - Oral herpes [Recovering/Resolving]
  - Decreased appetite [Recovered/Resolved]
  - Micturition urgency [Recovered/Resolved]
  - Urinary tract infection [Recovering/Resolving]
  - Asthenia [Recovering/Resolving]
  - Nasal herpes [Recovered/Resolved]
  - Haematuria [Recovered/Resolved]

NARRATIVE: CASE EVENT DATE: 20160404
